FAERS Safety Report 17273511 (Version 1)
Quarter: 2020Q1

REPORT INFORMATION
  Report Type: Spontaneous
  Country: US (occurrence: US)
  Receive Date: 20191224
  Receipt Date: 20191224
  Transmission Date: 20200409
  Serious: Yes (Death)
  Sender: FDA-Public Use
  Company Number: None

PATIENT
  Sex: Male

DRUGS (1)
  1. ESBRIET [Suspect]
     Active Substance: PIRFENIDONE
     Indication: IDIOPATHIC PULMONARY FIBROSIS
     Dosage: ?          OTHER DOSE:2 TABS;?
     Route: 048
     Dates: start: 20181127, end: 20191201

REACTIONS (3)
  - Chronic obstructive pulmonary disease [None]
  - Fungal infection [None]
  - Idiopathic pulmonary fibrosis [None]
